FAERS Safety Report 4770884-6 (Version None)
Quarter: 2005Q3

REPORT INFORMATION
  Report Type: 
  Country: None (occurrence: None)
  Receive Date: 20050915
  Receipt Date: 20050909
  Transmission Date: 20060218
  Serious: Yes (Other)
  Sender: FDA-Public Use
  Company Number: JP-ROCHE-417100

PATIENT
  Age: 63 Year
  Sex: Male

DRUGS (5)
  1. PANALDINE [Suspect]
     Indication: THROMBOSIS PROPHYLAXIS
     Dosage: THERAPY DURATION REPORTED AS 4 WEEKS AND 3 DAYS. SECONDARY INDICATIONS OF PERCUTAENOUS CORONARY INT+
     Route: 048
     Dates: start: 20050724, end: 20050823
  2. DIOVAN [Suspect]
     Indication: DRUG USE FOR UNKNOWN INDICATION
     Dosage: DRUG TRADE NAME WAS REPORTED AS DIOVAN ^CIBA-GEIGY^
     Route: 048
  3. ZANTAC [Suspect]
     Indication: DRUG USE FOR UNKNOWN INDICATION
     Route: 048
  4. LOXONIN [Suspect]
     Indication: DRUG USE FOR UNKNOWN INDICATION
     Route: 048
  5. ASPIRIN [Concomitant]
     Route: 048

REACTIONS (6)
  - DECREASED APPETITE [None]
  - PYREXIA [None]
  - RED BLOOD CELL COUNT DECREASED [None]
  - STOMACH DISCOMFORT [None]
  - THROMBOTIC THROMBOCYTOPENIC PURPURA [None]
  - WHITE BLOOD CELL COUNT DECREASED [None]
